FAERS Safety Report 9665011 (Version 1)
Quarter: 2013Q4

REPORT INFORMATION
  Report Type: Spontaneous
  Country: IT (occurrence: IT)
  Receive Date: 20131101
  Receipt Date: 20131101
  Transmission Date: 20140711
  Serious: Yes (Other)
  Sender: FDA-Public Use
  Company Number: PHHY2013IT122955

PATIENT
  Sex: Female

DRUGS (1)
  1. OXCARBAZEPINE [Suspect]
     Indication: CONVULSION

REACTIONS (9)
  - Condition aggravated [Unknown]
  - Myoclonic epilepsy [Recovering/Resolving]
  - Convulsion [Recovering/Resolving]
  - Hyperpyrexia [Unknown]
  - Clonus [Unknown]
  - Gait disturbance [Unknown]
  - Myoclonus [Unknown]
  - Clonic convulsion [Recovering/Resolving]
  - Language disorder [Unknown]
